FAERS Safety Report 13997899 (Version 1)
Quarter: 2017Q3

REPORT INFORMATION
  Report Type: Spontaneous
  Country: DE (occurrence: DE)
  Receive Date: 20170921
  Receipt Date: 20170921
  Transmission Date: 20171128
  Serious: Yes (Other)
  Sender: FDA-Public Use
  Company Number: DE-PFIZER INC-2017404334

PATIENT
  Age: 10 Year
  Sex: Female
  Weight: 44 kg

DRUGS (1)
  1. PROPOFOL. [Suspect]
     Active Substance: PROPOFOL
     Indication: SEDATION
     Dosage: 150 MG, UNK
     Route: 042
     Dates: start: 20170901

REACTIONS (2)
  - Eye movement disorder [Recovered/Resolved]
  - Hypertonia [Recovered/Resolved]

NARRATIVE: CASE EVENT DATE: 20170901
